FAERS Safety Report 7402493-4 (Version None)
Quarter: 2011Q2

REPORT INFORMATION
  Report Type: 
  Country: None (occurrence: None)
  Receive Date: 20110408
  Receipt Date: 20110401
  Transmission Date: 20111010
  Serious: Yes (Hospitalization)
  Sender: FDA-Public Use
  Company Number: PHHY2010DE19411

PATIENT
  Sex: Female

DRUGS (1)
  1. EXTAVIA [Suspect]
     Indication: MULTIPLE SCLEROSIS
     Dosage: 250 UG, QOD
     Route: 058
     Dates: start: 20090422

REACTIONS (6)
  - PYREXIA [None]
  - ABDOMINAL WALL HAEMATOMA [None]
  - VOMITING [None]
  - CHILLS [None]
  - MUSCLE HAEMORRHAGE [None]
  - INFLUENZA LIKE ILLNESS [None]
